FAERS Safety Report 15773043 (Version 1)
Quarter: 2018Q4

REPORT INFORMATION
  Report Type: Spontaneous
  Country: FR (occurrence: FR)
  Receive Date: 20181228
  Receipt Date: 20181228
  Transmission Date: 20190205
  Serious: Yes (Hospitalization)
  Sender: FDA-Public Use
  Company Number: FR-TEVA-2018-FR-992073

PATIENT
  Age: 55 Year
  Sex: Male
  Weight: 127 kg

DRUGS (12)
  1. METHYLPREDNISOLONE. [Concomitant]
     Active Substance: METHYLPREDNISOLONE
     Route: 037
     Dates: start: 20181011, end: 20181011
  2. PENTACARINAT [Concomitant]
     Active Substance: PENTAMIDINE ISETHIONATE
     Dosage: 300 MILLIGRAM DAILY;
     Route: 048
  3. VINCRISTINE HOSPIRA 2 MG/2 ML, SOLUTION INJECTABLE [Concomitant]
     Active Substance: VINCRISTINE SULFATE
     Route: 042
     Dates: start: 20181010
  4. PURINETHOL [Concomitant]
     Active Substance: MERCAPTOPURINE
     Route: 042
     Dates: start: 20181010, end: 20181012
  5. METHOTREXATE. [Suspect]
     Active Substance: METHOTREXATE
     Indication: ACUTE LYMPHOCYTIC LEUKAEMIA
     Route: 037
     Dates: start: 20181011, end: 20181011
  6. RITUXIMAB ((MAMMIFERE/HAMSTER/CELLULES CHO)) [Concomitant]
     Active Substance: RITUXIMAB
     Dosage: SINGLE OUTLET
     Route: 042
     Dates: start: 20181010
  7. VORAXAZE 1000UNIT?S, POUDRE POUR SOLUTION INJECTABLE [Concomitant]
     Route: 042
     Dates: start: 20181012, end: 20181012
  8. METHOTREXATE. [Suspect]
     Active Substance: METHOTREXATE
     Indication: ACUTE LYMPHOCYTIC LEUKAEMIA
     Route: 042
     Dates: start: 20181010, end: 20181010
  9. ZELITREX 500 MG, COMPRIM? ENROB? [Concomitant]
     Active Substance: VALACYCLOVIR HYDROCHLORIDE
     Dosage: 1 DOSAGE FORMS DAILY;
     Route: 048
  10. KARDEGIC [Concomitant]
     Active Substance: ASPIRIN DL-LYSINE
     Dosage: 100 MILLIGRAM DAILY;
     Route: 048
  11. ARACYTINE 40 MG, LYOPHILISAT ET SOLUTION POUR USAGE PARENT?RAL [Concomitant]
     Active Substance: CYTARABINE
     Dosage: SINGLE OUTLET
     Route: 037
     Dates: start: 20181011, end: 20181011
  12. ACIDE FOLIQUE [Concomitant]
     Active Substance: FOLIC ACID
     Route: 048
     Dates: start: 20181010

REACTIONS (2)
  - Overdose [Recovering/Resolving]
  - Acute kidney injury [Recovering/Resolving]

NARRATIVE: CASE EVENT DATE: 20181011
